FAERS Safety Report 13535264 (Version 1)
Quarter: 2017Q2

REPORT INFORMATION
  Report Type: Spontaneous
  Country: None (occurrence: US)
  Receive Date: 20170510
  Receipt Date: 20170510
  Transmission Date: 20170830
  Serious: No
  Sender: FDA-Public Use
  Company Number: None

PATIENT
  Sex: Male

DRUGS (1)
  1. STELARA [Suspect]
     Active Substance: USTEKINUMAB
     Indication: PSORIATIC ARTHROPATHY
     Dosage: 90 MG EVERY 2 MONTHS SQ
     Route: 058
     Dates: start: 20161022

REACTIONS (2)
  - Blood alkaline phosphatase increased [None]
  - Vitamin D deficiency [None]
